FAERS Safety Report 19310728 (Version 4)
Quarter: 2021Q2

REPORT INFORMATION
  Report Type: Spontaneous
  Country: US (occurrence: US)
  Receive Date: 20210526
  Receipt Date: 20210625
  Transmission Date: 20210717
  Serious: Yes (Other)
  Sender: FDA-Public Use
  Company Number: US-ALXN-A202106037

PATIENT
  Age: 22 Year
  Sex: Male
  Weight: 83.9 kg

DRUGS (2)
  1. ULTOMIRIS [Suspect]
     Active Substance: RAVULIZUMAB-CWVZ
     Dosage: 3300 MG
     Route: 042
     Dates: start: 20210507
  2. ULTOMIRIS [Suspect]
     Active Substance: RAVULIZUMAB-CWVZ
     Indication: ATYPICAL HAEMOLYTIC URAEMIC SYNDROME
     Dosage: UNK
     Route: 042
     Dates: start: 202006

REACTIONS (6)
  - Complement factor C3 decreased [Unknown]
  - Chronic kidney disease [Unknown]
  - Weight decreased [Unknown]
  - Acute kidney injury [Unknown]
  - Congenital cystic kidney disease [Unknown]
  - Total complement activity decreased [Unknown]

NARRATIVE: CASE EVENT DATE: 20210507
